FAERS Safety Report 20318402 (Version 1)
Quarter: 2022Q1

REPORT INFORMATION
  Report Type: Spontaneous
  Country: US (occurrence: None)
  Receive Date: 20220110
  Receipt Date: 20220110
  Transmission Date: 20220424
  Serious: No
  Sender: FDA-Public Use
  Company Number: None

PATIENT
  Age: 40 Year
  Sex: Female

DRUGS (1)
  1. HUMIRA [Suspect]
     Active Substance: ADALIMUMAB
     Indication: Hidradenitis
     Dosage: FREQUENCY : AS DIRECTED; STARTING ON DAY 29 AS DIRECTED?
     Route: 058
     Dates: start: 202109

REACTIONS (2)
  - Blister [None]
  - Nasopharyngitis [None]
